FAERS Safety Report 7179735-6 (Version None)
Quarter: 2010Q4

REPORT INFORMATION
  Report Type: 
  Country: None (occurrence: None)
  Receive Date: 20101221
  Receipt Date: 20101215
  Transmission Date: 20110411
  Serious: Yes (Hospitalization)
  Sender: FDA-Public Use
  Company Number: US-ROCHE-748606

PATIENT
  Sex: Male

DRUGS (2)
  1. TAMIFLU [Suspect]
     Route: 065
  2. KAPIDEX [Suspect]
     Route: 065
     Dates: start: 20100201, end: 20100101

REACTIONS (1)
  - SEPTIC SHOCK [None]
